FAERS Safety Report 16305542 (Version 1)
Quarter: 2019Q2

REPORT INFORMATION
  Report Type: Spontaneous
  Country: US (occurrence: US)
  Receive Date: 20190512
  Receipt Date: 20190512
  Transmission Date: 20190711
  Serious: Yes (Other)
  Sender: FDA-Public Use
  Company Number: None

PATIENT
  Age: 41 Year
  Sex: Female
  Weight: 49.5 kg

DRUGS (6)
  1. VITAMIN B12 [Suspect]
     Active Substance: CYANOCOBALAMIN
     Indication: VITAMIN B12 DECREASED
     Dates: start: 20180731, end: 20190508
  2. 2.5 MG LEXPRO [Concomitant]
  3. ORTHO TRI CYCLEN [Concomitant]
     Active Substance: ETHINYL ESTRADIOL\NORGESTIMATE
  4. FLONASE 10 MG [Concomitant]
  5. SINGULAIR [Concomitant]
     Active Substance: MONTELUKAST SODIUM
  6. VITAMIN D 2000 IU [Concomitant]

REACTIONS (4)
  - Malaise [None]
  - Swollen tongue [None]
  - Aphasia [None]
  - Generalised oedema [None]

NARRATIVE: CASE EVENT DATE: 20190508
